FAERS Safety Report 8809059 (Version 1)
Quarter: 2012Q4

REPORT INFORMATION
  Report Type: 
  Country: DE (occurrence: DE)
  Receive Date: 20120926
  Receipt Date: 20120926
  Transmission Date: 20130627
  Serious: Yes (Other)
  Sender: FDA-Public Use
  Company Number: DE-ASTRAZENECA-2012SE72582

PATIENT
  Age: 74 Year
  Sex: Male

DRUGS (8)
  1. MEROPENEM [Suspect]
     Indication: PNEUMONIA
     Route: 042
  2. MEROPENEM [Suspect]
     Indication: SYSTEMIC INFLAMMATORY RESPONSE SYNDROME
     Route: 042
  3. IMMUNOGLOBULINES [Suspect]
     Indication: GUILLAIN-BARRE SYNDROME
  4. UNSPECIFIED [Suspect]
  5. CORTISONE [Concomitant]
     Indication: GUILLAIN-BARRE SYNDROME
  6. VORICONAZOLE [Concomitant]
     Indication: PNEUMONIA
     Route: 042
  7. VORICONAZOLE [Concomitant]
     Indication: SYSTEMIC INFLAMMATORY RESPONSE SYNDROME
     Route: 042
  8. ENOXAPARIN [Concomitant]

REACTIONS (1)
  - Factor V inhibition [Recovered/Resolved]
